FAERS Safety Report 9124243 (Version 1)
Quarter: 2013Q1

REPORT INFORMATION
  Report Type: Spontaneous
  Country: JP (occurrence: JP)
  Receive Date: 20130227
  Receipt Date: 20130227
  Transmission Date: 20140127
  Serious: Yes (Death)
  Sender: FDA-Public Use
  Company Number: JP-GILEAD-2013-0070267

PATIENT
  Age: 80 Year
  Sex: Male

DRUGS (7)
  1. AMBRISENTAN [Suspect]
     Indication: PRODUCT USED FOR UNKNOWN INDICATION
     Dosage: 10MG PER DAY
     Route: 048
  2. FEBURIC [Concomitant]
     Route: 048
  3. TANATRIL [Concomitant]
     Route: 048
  4. BREDININ [Concomitant]
     Route: 048
  5. RECALBON [Concomitant]
     Route: 048
  6. NORVASC [Concomitant]
     Route: 048
  7. EPADEL                             /01682401/ [Concomitant]
     Route: 048

REACTIONS (1)
  - Pulmonary hypertension [Fatal]
